FAERS Safety Report 7486505-8 (Version None)
Quarter: 2011Q2

REPORT INFORMATION
  Report Type: 
  Country: None (occurrence: None)
  Receive Date: 20110517
  Receipt Date: 20100518
  Transmission Date: 20111010
  Serious: No
  Sender: FDA-Public Use
  Company Number: US-NOVEN-ALL1-2010-02905

PATIENT

DRUGS (4)
  1. HYPERCARE [Concomitant]
     Dosage: UNK, 1X/DAY:QD (ONE SPRAY)
     Route: 061
  2. DAYTRANA [Suspect]
     Dosage: 15 MG, 1X/DAY:QD
     Route: 062
     Dates: start: 20091101, end: 20100101
  3. DAYTRANA [Suspect]
     Dosage: 15 MG, 1X/DAY:QD
     Route: 062
     Dates: start: 20100101
  4. ACZONE [Concomitant]
     Dosage: 5 %, 2X/DAY:BID
     Route: 061

REACTIONS (3)
  - MUSCLE TWITCHING [None]
  - OFF LABEL USE [None]
  - HEADACHE [None]
